FAERS Safety Report 11589373 (Version 3)
Quarter: 2016Q1

REPORT INFORMATION
  Report Type: Report from Study
  Country: US (occurrence: US)
  Receive Date: 20151002
  Receipt Date: 20160202
  Transmission Date: 20160525
  Serious: Yes (Hospitalization, Other)
  Sender: FDA-Public Use
  Company Number: US-JNJFOC-20150926586

PATIENT
  Age: 62 Year
  Sex: Female

DRUGS (1)
  1. REMICADE [Suspect]
     Active Substance: INFLIXIMAB
     Indication: RHEUMATOID ARTHRITIS
     Route: 042

REACTIONS (5)
  - Intervertebral disc protrusion [Unknown]
  - Breast cancer [Not Recovered/Not Resolved]
  - Adverse event [Unknown]
  - Knee arthroplasty [Unknown]
  - Neuralgia [Unknown]

NARRATIVE: CASE EVENT DATE: 2015
